FAERS Safety Report 11617518 (Version 2)
Quarter: 2015Q4

REPORT INFORMATION
  Report Type: Spontaneous
  Country: JP (occurrence: JP)
  Receive Date: 20151009
  Receipt Date: 20151226
  Transmission Date: 20160304
  Serious: Yes (Hospitalization, Other)
  Sender: FDA-Public Use
  Company Number: JP-BRISTOL-MYERS SQUIBB COMPANY-BMS-2015-032014

PATIENT
  Age: 71 Year
  Sex: Female
  Weight: 55 kg

DRUGS (2)
  1. ELIQUIS [Suspect]
     Active Substance: APIXABAN
     Indication: CEREBROVASCULAR ACCIDENT PROPHYLAXIS
     Dosage: 5 MG, BID
     Route: 048
     Dates: start: 20141029, end: 20150401
  2. SUNRYTHM [Concomitant]
     Active Substance: PILSICAINIDE HYDROCHLORIDE
     Indication: PRODUCT USED FOR UNKNOWN INDICATION
     Dosage: 50 MG, TID
     Route: 048
     Dates: start: 20080621

REACTIONS (4)
  - Hypertension [Recovered/Resolved]
  - Plastic surgery [Unknown]
  - Osteoarthritis [Recovered/Resolved with Sequelae]
  - Knee arthroplasty [Unknown]

NARRATIVE: CASE EVENT DATE: 201405
